FAERS Safety Report 7203371-6 (Version None)
Quarter: 2010Q4

REPORT INFORMATION
  Report Type: 
  Country: None (occurrence: None)
  Receive Date: 20101220
  Receipt Date: 20101213
  Transmission Date: 20110411
  Serious: Yes (Hospitalization)
  Sender: FDA-Public Use
  Company Number: TPA2010A06063

PATIENT
  Age: 40 Year
  Sex: Male
  Weight: 99.3377 kg

DRUGS (5)
  1. ACTOS [Suspect]
     Indication: TYPE 2 DIABETES MELLITUS
     Dosage: 30 MG, 1 IN 1 D, PER ORAL, PRIOR TO 2008 - 09/ /2010
     Route: 048
  2. METOPROLOL SUCCINATE [Concomitant]
  3. METFORMIN HCL [Concomitant]
  4. PRILOSEC (OMEPRAZOLE [Concomitant]
  5. ASPRIRIN (ACETYLSALICYLIC ACID) [Concomitant]

REACTIONS (3)
  - CHEST PAIN [None]
  - CORONARY ARTERY OCCLUSION [None]
  - ECONOMIC PROBLEM [None]
